FAERS Safety Report 6711706-3 (Version None)
Quarter: 2010Q2

REPORT INFORMATION
  Report Type: 
  Country: None (occurrence: None)
  Receive Date: 20100505
  Receipt Date: 20100430
  Transmission Date: 20101027
  Serious: Yes (Life-Threatening, Hospitalization)
  Sender: FDA-Public Use
  Company Number: RU-ROCHE-685583

PATIENT
  Sex: Female
  Weight: 60 kg

DRUGS (9)
  1. TOCILIZUMAB [Suspect]
     Indication: RHEUMATOID ARTHRITIS
     Dosage: TEMPORARILY INTERRUPTED
     Route: 042
     Dates: start: 20060627
  2. TOCILIZUMAB [Suspect]
     Dosage: LAST DOSE PRIOR TO SAE: 21 JANUARY 2010; PERMANENTLY DISCONTINUED
     Route: 042
     Dates: start: 20061227, end: 20100318
  3. TOCILIZUMAB [Suspect]
     Dosage: THE PATIENT WAS PREVIOUSLY ENROLLED IN DOUBLE BLINDED MRA STUDY WA18063
     Route: 042
  4. METHOTREXATE [Concomitant]
     Dates: start: 20060401, end: 20100210
  5. MELOXICAM [Concomitant]
     Dates: start: 20060426
  6. OMEPRAZOLE [Concomitant]
     Dosage: DRUG REPORTED AS OMEPRASOL
     Dates: start: 20060405
  7. METHYLPREDNISOLONE [Concomitant]
     Dates: start: 20091015
  8. FOLIC ACID [Concomitant]
     Dosage: DAILY DOSE: 5 'IS'
     Dates: start: 20060405, end: 20100210
  9. KETOPROFEN [Concomitant]
     Dates: start: 20090910, end: 20100210

REACTIONS (3)
  - COLON CANCER [None]
  - LARGE INTESTINE PERFORATION [None]
  - PERITONITIS [None]
